FAERS Safety Report 11165509 (Version 1)
Quarter: 2015Q2

REPORT INFORMATION
  Report Type: Spontaneous
  Country: DK (occurrence: DK)
  Receive Date: 20150604
  Receipt Date: 20150604
  Transmission Date: 20150821
  Serious: Yes (Disabling)
  Sender: FDA-Public Use
  Company Number: PHHY2015DK063995

PATIENT
  Age: 65 Year
  Sex: Female
  Weight: 55 kg

DRUGS (2)
  1. PREDNISOLON [Concomitant]
     Active Substance: PREDNISOLONE
     Indication: CHRONIC OBSTRUCTIVE PULMONARY DISEASE
     Route: 065
     Dates: start: 20150401
  2. VIBRADOX [Suspect]
     Active Substance: DOXYCYCLINE
     Indication: PNEUMONIA BACTERIAL
     Dosage: (FIRST DAY 100 MG TWO TIMES DAILY, THEREAFTER 100 MG DAILY IN 8 DAYS )
     Route: 048
     Dates: start: 20150401, end: 20150408

REACTIONS (2)
  - Somnolence [Not Recovered/Not Resolved]
  - Dizziness [Not Recovered/Not Resolved]

NARRATIVE: CASE EVENT DATE: 20150401
